FAERS Safety Report 18912925 (Version 2)
Quarter: 2021Q1

REPORT INFORMATION
  Report Type: Spontaneous
  Country: IL (occurrence: IL)
  Receive Date: 20210219
  Receipt Date: 20210223
  Transmission Date: 20210420
  Serious: Yes (Death)
  Sender: FDA-Public Use
  Company Number: IL-CELLTRION INC.-2021IL002020

PATIENT

DRUGS (2)
  1. RITUXIMAB (UNKNOWN) [Suspect]
     Active Substance: RITUXIMAB
     Indication: PEMPHIGUS
     Dosage: 1,000 MG ON DAYS 0 AND 14 (GREATER THAN OR EQUAL TO 1 RITUXIMAB CYCLES)
  2. PREDNISONE. [Concomitant]
     Active Substance: PREDNISONE
     Indication: PEMPHIGUS
     Dosage: HIGH DOSE 1 MG/KG

REACTIONS (2)
  - Atypical pneumonia [Fatal]
  - Klebsiella infection [Fatal]
